FAERS Safety Report 18744652 (Version 5)
Quarter: 2021Q1

REPORT INFORMATION
  Report Type: Spontaneous
  Country: JP (occurrence: JP)
  Receive Date: 20210115
  Receipt Date: 20210217
  Transmission Date: 20210419
  Serious: Yes (Death, Hospitalization, Other)
  Sender: FDA-Public Use
  Company Number: JP-BIOVITRUM-2021JP0498

PATIENT
  Age: 4 Month
  Sex: Male
  Weight: 5 kg

DRUGS (1)
  1. SYNAGIS [Suspect]
     Active Substance: PALIVIZUMAB
     Indication: ANTIVIRAL PROPHYLAXIS
     Route: 030

REACTIONS (8)
  - Coagulopathy [Unknown]
  - Respiratory syncytial virus infection [Fatal]
  - Bronchostenosis [Unknown]
  - Multiple organ dysfunction syndrome [Unknown]
  - Pulmonary haemorrhage [Unknown]
  - Respiratory failure [Not Recovered/Not Resolved]
  - Altered state of consciousness [Unknown]
  - Haemophagocytic lymphohistiocytosis [Unknown]
